FAERS Safety Report 17980147 (Version 1)
Quarter: 2020Q3

REPORT INFORMATION
  Report Type: Spontaneous
  Country: PL (occurrence: PL)
  Receive Date: 20200703
  Receipt Date: 20200703
  Transmission Date: 20201103
  Serious: Yes (Other)
  Sender: FDA-Public Use
  Company Number: NVSC2020PL185659

PATIENT
  Age: 62 Year
  Sex: Female
  Weight: 62 kg

DRUGS (1)
  1. IMATINIB. [Suspect]
     Active Substance: IMATINIB MESYLATE
     Indication: SMALL INTESTINE CARCINOMA
     Dosage: 400 MG, Q24H (1X1)
     Route: 048

REACTIONS (2)
  - Eyelid oedema [Unknown]
  - Eye oedema [Unknown]
